FAERS Safety Report 7235184-3 (Version None)
Quarter: 2011Q1

REPORT INFORMATION
  Report Type: 
  Country: None (occurrence: None)
  Receive Date: 20110114
  Receipt Date: 20110114
  Transmission Date: 20110831
  Serious: Yes (Life-Threatening, Hospitalization)
  Sender: FDA-Public Use
  Company Number: None

PATIENT
  Sex: Male
  Weight: 106 kg

DRUGS (1)
  1. SAMSCA [Suspect]
     Indication: HYPONATRAEMIA
     Dosage: 60 MG DAILY PO
     Route: 048
     Dates: start: 20101223, end: 20101227

REACTIONS (2)
  - UNRESPONSIVE TO STIMULI [None]
  - CARDIAC ARREST [None]
